FAERS Safety Report 6202374-8 (Version None)
Quarter: 2009Q2

REPORT INFORMATION
  Report Type: 
  Country: None (occurrence: None)
  Receive Date: 20090518
  Receipt Date: 20090309
  Transmission Date: 20091009
  Serious: No
  Sender: FDA-Public Use
  Company Number: WAES 0903USA01450

PATIENT
  Age: 85 Year
  Sex: Female

DRUGS (13)
  1. JANUVIA [Suspect]
     Indication: DIABETES MELLITUS
     Dosage: 50 MG/DAILY/PO
     Route: 048
     Dates: start: 20090218, end: 20090219
  2. CENTRUM SILVER [Concomitant]
  3. COLACE [Concomitant]
  4. LANTUS [Concomitant]
  5. VYTORIN [Concomitant]
  6. AMLODIPINE [Concomitant]
  7. ASPIRIN [Concomitant]
  8. FERROUS SULFATE TAB [Concomitant]
  9. HYDROCHLOROTHIAZIDE [Concomitant]
  10. ISOSORBIDE [Concomitant]
  11. METOPROLOL SUCCINATE [Concomitant]
  12. RANITIDINE [Concomitant]
  13. TERAZOSIN HYDROCHLORIDE [Concomitant]

REACTIONS (3)
  - MALAISE [None]
  - PRESYNCOPE [None]
  - PSYCHOMOTOR HYPERACTIVITY [None]
